FAERS Safety Report 10510893 (Version 2)
Quarter: 2014Q4

REPORT INFORMATION
  Report Type: Report from Study
  Country: IT (occurrence: IT)
  Receive Date: 20141010
  Receipt Date: 20141020
  Transmission Date: 20150528
  Serious: Yes (Hospitalization)
  Sender: FDA-Public Use
  Company Number: IT-ABBVIE-14P-083-1290196-00

PATIENT
  Age: 58 Year
  Sex: Male
  Weight: 117 kg

DRUGS (10)
  1. DELTACORTENE [Concomitant]
     Active Substance: PREDNISONE
     Route: 048
     Dates: start: 20140325
  2. LUMIGAN [Concomitant]
     Active Substance: BIMATOPROST
     Indication: INTRAOCULAR PRESSURE INCREASED
  3. DELTACORTENE [Concomitant]
     Active Substance: PREDNISONE
     Indication: UVEITIS
     Route: 048
     Dates: start: 20140121, end: 20140224
  4. BETABIOPTAL [Concomitant]
     Indication: UVEITIS
     Route: 061
     Dates: start: 20140805
  5. COSOPT [Concomitant]
     Active Substance: DORZOLAMIDE HYDROCHLORIDE\TIMOLOL MALEATE
     Indication: INTRAOCULAR PRESSURE TEST ABNORMAL
     Route: 061
     Dates: start: 20130225, end: 20140324
  6. CPAP CONTINUOUS POSITIVE AIRWAY PRESSURE [Concomitant]
     Indication: SLEEP APNOEA SYNDROME
     Route: 045
     Dates: start: 2007
  7. DICLOCULAR [Concomitant]
     Indication: UVEITIS
     Route: 061
     Dates: start: 20131210, end: 20140107
  8. DELTACORTENE [Concomitant]
     Active Substance: PREDNISONE
     Route: 048
     Dates: start: 20140225, end: 20140324
  9. LUMIGAN [Concomitant]
     Active Substance: BIMATOPROST
     Indication: PROPHYLAXIS
     Route: 061
     Dates: start: 20140325
  10. HUMIRA [Suspect]
     Active Substance: ADALIMUMAB
     Indication: UVEITIS
     Route: 058
     Dates: start: 20140107, end: 20140902

REACTIONS (2)
  - Overweight [Recovered/Resolved]
  - Cholecystitis [Not Recovered/Not Resolved]

NARRATIVE: CASE EVENT DATE: 20140930
